FAERS Safety Report 24449682 (Version 4)
Quarter: 2025Q1

REPORT INFORMATION
  Report Type: Report from Study
  Country: US (occurrence: US)
  Receive Date: 20241017
  Receipt Date: 20250103
  Transmission Date: 20250409
  Serious: No
  Sender: ABBVIE
  Company Number: US-ABBVIE-5963270

PATIENT
  Age: 60 Year
  Sex: Female
  Weight: 85.275 kg

DRUGS (8)
  1. SKYRIZI [Suspect]
     Active Substance: RISANKIZUMAB-RZAA
     Indication: Crohn^s disease
     Dosage: FORM STRENGTH: 360 MILLIGRAM
     Route: 058
     Dates: start: 20231003
  2. SKYRIZI [Suspect]
     Active Substance: RISANKIZUMAB-RZAA
     Route: 058
     Dates: start: 20231031
  3. VITAMIN D2 [Concomitant]
     Active Substance: ERGOCALCIFEROL
     Indication: Immune system disorder
  4. CELECOXIB [Concomitant]
     Active Substance: CELECOXIB
     Indication: Knee arthroplasty
  5. VITAMIN B12 [Concomitant]
     Active Substance: CYANOCOBALAMIN
     Indication: Immune system disorder
  6. ESCITALOPRAM [Concomitant]
     Active Substance: ESCITALOPRAM OXALATE
     Indication: Depression
  7. ALENDRONATE [Concomitant]
     Active Substance: ALENDRONATE SODIUM
     Indication: Osteoporosis
  8. LYRICA [Concomitant]
     Active Substance: PREGABALIN
     Indication: Knee arthroplasty

REACTIONS (8)
  - Graves^ disease [Not Recovered/Not Resolved]
  - Asthenia [Unknown]
  - Thyroid disorder [Recovered/Resolved]
  - Fatigue [Not Recovered/Not Resolved]
  - Ocular discomfort [Unknown]
  - Headache [Not Recovered/Not Resolved]
  - Eye inflammation [Unknown]
  - Endocrine ophthalmopathy [Unknown]

NARRATIVE: CASE EVENT DATE: 20240901
